FAERS Safety Report 9125933 (Version 1)
Quarter: 2013Q1

REPORT INFORMATION
  Report Type: Spontaneous
  Country: US (occurrence: US)
  Receive Date: 20130117
  Receipt Date: 20130117
  Transmission Date: 20140127
  Serious: Yes (Other)
  Sender: FDA-Public Use
  Company Number: US-PFIZER INC-2013019221

PATIENT
  Age: 57 Year
  Sex: Female
  Weight: 81.63 kg

DRUGS (8)
  1. LYRICA [Suspect]
     Indication: FIBROMYALGIA
     Dosage: UNK, 2X/DAY
     Route: 048
  2. TRAZODONE [Concomitant]
     Dosage: 300 MG, UNK
  3. EFFEXOR [Concomitant]
     Dosage: 75 MG, UNK
  4. LISINOPRIL [Concomitant]
     Indication: HYPERTENSION
     Dosage: 20 MG, UNK
  5. TOPAMAX [Concomitant]
     Indication: MIGRAINE
     Dosage: UNK
  6. NEURONTIN [Concomitant]
     Dosage: UNK
  7. METFORMIN [Concomitant]
     Indication: DIABETES MELLITUS
     Dosage: UNK
  8. MIRAPEX [Concomitant]
     Dosage: UNK

REACTIONS (4)
  - Back disorder [Unknown]
  - Memory impairment [Unknown]
  - Ecchymosis [Recovered/Resolved]
  - Cough [Unknown]
